FAERS Safety Report 8143061 (Version 10)
Quarter: 2013Q1

REPORT INFORMATION
  Report Type: Spontaneous
  Country: US (occurrence: US)
  Receive Date: 20110919
  Receipt Date: 20130327
  Transmission Date: 20140127
  Serious: Yes (Hospitalization, Other)
  Sender: FDA-Public Use
  Company Number: US-ASTRAZENECA-2011SE46972

PATIENT
  Age: 64 Year
  Sex: Female
  Weight: 77.1 kg

DRUGS (29)
  1. SEROQUEL [Suspect]
     Indication: BIPOLAR DISORDER
     Route: 048
     Dates: start: 2011
  2. SEROQUEL [Suspect]
     Indication: BIPOLAR DISORDER
     Route: 048
     Dates: start: 1999
  3. SYMBICORT [Suspect]
     Indication: CHRONIC OBSTRUCTIVE PULMONARY DISEASE
     Dosage: 80/4.5 MCG, BID
     Route: 055
  4. NEXIUM [Suspect]
     Dosage: SUPPOSE TO TAKE 2 CAPSULES A DAY BUT DOCTOR ADVISED HER TO TAKE THE NEXIUM THREE TIMES A DAY
     Route: 048
  5. NEXIUM [Suspect]
     Dosage: 1 CAPSULE IN THE MORNING AND 1 AT NIGHT BUT DIRECTION ON PRESCIPTION SAID TO TAKE 1 IN THE MORNING
     Route: 048
  6. HALDOL [Suspect]
     Route: 065
  7. KLOR-CON [Concomitant]
     Indication: BLOOD POTASSIUM DECREASED
  8. ACETAZOLAMIDE [Concomitant]
  9. CYMBALTA [Concomitant]
  10. DILTIAZEM [Concomitant]
  11. ZOLPIDEM [Concomitant]
  12. SPIRIVA [Concomitant]
     Indication: CHRONIC OBSTRUCTIVE PULMONARY DISEASE
     Dosage: DAILY
  13. ATIVAN [Concomitant]
  14. VICODIN [Concomitant]
     Dosage: AS NEEDED
  15. PROAIR [Concomitant]
     Indication: CHRONIC OBSTRUCTIVE PULMONARY DISEASE
     Dosage: 8.5 GM, PRN
  16. KLONOPIN [Concomitant]
     Indication: PANIC ATTACK
  17. STOOL SOFTENER [Concomitant]
  18. CARVEDILOL [Concomitant]
     Indication: HYPERTENSION
  19. HYDROCODONE [Concomitant]
     Indication: PAIN
     Dosage: 5/500 MG, PRN
     Dates: start: 2011
  20. TIZANIDINE [Concomitant]
     Indication: SCIATICA
  21. CLONIDINE [Concomitant]
     Indication: BLOOD PRESSURE ABNORMAL
     Dates: start: 2011
  22. ADVAIR [Concomitant]
     Indication: CHRONIC OBSTRUCTIVE PULMONARY DISEASE
     Dosage: 250/50, BID
  23. ZOFRIN [Concomitant]
     Indication: NAUSEA
  24. SEROQUEL [Suspect]
     Indication: BIPOLAR DISORDER
     Route: 048
  25. SEROQUEL [Suspect]
     Indication: BIPOLAR DISORDER
     Route: 048
     Dates: start: 2009
  26. SEROQUEL [Suspect]
     Indication: BIPOLAR DISORDER
     Route: 048
  27. SEROQUEL [Suspect]
     Indication: BIPOLAR DISORDER
     Dosage: 200 MG, HALF TABLET
     Route: 048
  28. SEROQUEL [Suspect]
     Indication: BIPOLAR DISORDER
     Route: 048
     Dates: end: 201203
  29. SEROQUEL [Suspect]
     Indication: BIPOLAR DISORDER
     Route: 048

REACTIONS (33)
  - Cataract [Unknown]
  - Renal failure [Unknown]
  - Mania [Recovering/Resolving]
  - Diarrhoea [Recovering/Resolving]
  - Bone disorder [Unknown]
  - Cardiac failure congestive [Unknown]
  - Chronic obstructive pulmonary disease [Unknown]
  - Obsessive-compulsive disorder [Unknown]
  - Eyelid ptosis [Unknown]
  - Eye pruritus [Unknown]
  - Glaucoma [Unknown]
  - Migraine [Unknown]
  - Thinking abnormal [Unknown]
  - Pain [Unknown]
  - Pneumonia [Unknown]
  - Sciatica [Unknown]
  - Gastric disorder [Unknown]
  - Adverse drug reaction [Recovered/Resolved]
  - Confusional state [Recovering/Resolving]
  - Sleep disorder [Unknown]
  - Hypertension [Unknown]
  - Psychomotor hyperactivity [Recovered/Resolved]
  - Mood swings [Recovering/Resolving]
  - Nausea [Unknown]
  - Hypersomnia [Unknown]
  - Stress [Unknown]
  - Abnormal dreams [Recovering/Resolving]
  - Intentional drug misuse [Unknown]
  - Drug dose omission [Unknown]
  - Intentional drug misuse [Unknown]
  - Intentional drug misuse [Unknown]
  - Drug dispensing error [Unknown]
  - Overdose [Unknown]
